FAERS Safety Report 8770070 (Version 2)
Quarter: 2013Q1

REPORT INFORMATION
  Report Type: Report from Study
  Country: JP (occurrence: JP)
  Receive Date: 20120905
  Receipt Date: 20130329
  Transmission Date: 20140127
  Serious: Yes (Other)
  Sender: FDA-Public Use
  Company Number: JP-009507513-1209JPN000279

PATIENT
  Age: 50 Year
  Sex: Male
  Weight: 72 kg

DRUGS (6)
  1. PEGINTRON [Suspect]
     Indication: CHRONIC HEPATITIS C
     Dosage: 1.5 MICROGRAM PER KILOGRAM, QW
     Route: 058
     Dates: start: 20120808, end: 20120814
  2. REBETOL [Suspect]
     Indication: CHRONIC HEPATITIS C
     Dosage: 800 MG, QD
     Route: 048
     Dates: start: 20120808, end: 20120810
  3. TELAVIC [Suspect]
     Indication: CHRONIC HEPATITIS C
     Dosage: 2250 MG, QD
     Route: 048
     Dates: start: 20120808, end: 20120810
  4. TALION [Concomitant]
     Indication: PROPHYLAXIS
     Dosage: DAILY DOSE UNKNOWN
     Route: 048
     Dates: start: 20120808, end: 20120813
  5. LACTEC [Concomitant]
     Indication: RENAL IMPAIRMENT
     Dosage: 500 ML, QD
     Route: 042
     Dates: start: 20120810, end: 20120812
  6. SOLDEM 3A [Concomitant]
     Indication: RENAL IMPAIRMENT
     Dosage: 500 ML, QD
     Route: 042
     Dates: start: 20120810, end: 20120813

REACTIONS (1)
  - Renal impairment [Recovered/Resolved]
